FAERS Safety Report 13644918 (Version 1)
Quarter: 2017Q2

REPORT INFORMATION
  Report Type: Spontaneous
  Country: US (occurrence: US)
  Receive Date: 20170612
  Receipt Date: 20170612
  Transmission Date: 20170830
  Serious: No
  Sender: FDA-Public Use
  Company Number: US-ROCHE-1356330

PATIENT
  Sex: Male

DRUGS (1)
  1. XELODA [Suspect]
     Active Substance: CAPECITABINE
     Indication: PRODUCT USED FOR UNKNOWN INDICATION
     Dosage: 6 TABS IN THE AM  5 TABS IN THE EVENING FOR 2 WEEKS, TWICE A DAILY FOR WEEKS
     Route: 048
     Dates: start: 20140114

REACTIONS (1)
  - Fatigue [Not Recovered/Not Resolved]
